FAERS Safety Report 17427983 (Version 4)
Quarter: 2020Q3

REPORT INFORMATION
  Report Type: Spontaneous
  Country: DE (occurrence: DE)
  Receive Date: 20200218
  Receipt Date: 20200930
  Transmission Date: 20201102
  Serious: Yes (Other)
  Sender: FDA-Public Use
  Company Number: DE-SA-2020SA038282

PATIENT

DRUGS (5)
  1. DUPIXENT [Suspect]
     Active Substance: DUPILUMAB
     Indication: NEURODERMATITIS
     Dosage: 300 MG
     Route: 058
     Dates: start: 201804, end: 201810
  2. DUPIXENT [Suspect]
     Active Substance: DUPILUMAB
     Indication: ERYTHRODERMIC ATOPIC DERMATITIS
  3. DUPIXENT [Suspect]
     Active Substance: DUPILUMAB
     Indication: DERMATITIS ATOPIC
  4. MTX [METHOTREXATE] [Concomitant]
     Active Substance: METHOTREXATE SODIUM
     Indication: ERYTHRODERMIC ATOPIC DERMATITIS
     Dosage: UNK
     Dates: start: 201810, end: 201901
  5. AZATHIOPRIN [Concomitant]
     Active Substance: AZATHIOPRINE
     Indication: ERYTHRODERMIC ATOPIC DERMATITIS
     Dosage: UNK
     Dates: start: 201901

REACTIONS (2)
  - Condition aggravated [Not Recovered/Not Resolved]
  - Cutaneous T-cell lymphoma [Not Recovered/Not Resolved]

NARRATIVE: CASE EVENT DATE: 20190930
